FAERS Safety Report 7113830-2 (Version None)
Quarter: 2010Q4

REPORT INFORMATION
  Report Type: 
  Country: None (occurrence: None)
  Receive Date: 20101119
  Receipt Date: 20101116
  Transmission Date: 20110411
  Serious: Yes (Death)
  Sender: FDA-Public Use
  Company Number: JP-MERCK-1011USA01999

PATIENT
  Age: 41 Year
  Sex: Male

DRUGS (2)
  1. JANUVIA [Suspect]
     Indication: TYPE 2 DIABETES MELLITUS
     Route: 048
     Dates: start: 20100219, end: 20100611
  2. METFORMIN HCL [Concomitant]
     Route: 065

REACTIONS (1)
  - SUBARACHNOID HAEMORRHAGE [None]
